FAERS Safety Report 5098641-4 (Version None)
Quarter: 2006Q3

REPORT INFORMATION
  Report Type: 
  Country: None (occurrence: None)
  Receive Date: 20060907
  Receipt Date: 20051204
  Transmission Date: 20061208
  Serious: Yes (Hospitalization)
  Sender: FDA-Public Use
  Company Number: NLWYE208406DEC05

PATIENT
  Age: 9 Year
  Sex: Female

DRUGS (15)
  1. ENBREL [Suspect]
     Indication: JUVENILE ARTHRITIS
     Route: 058
     Dates: start: 20051106, end: 20051128
  2. ENBREL [Suspect]
     Route: 058
     Dates: start: 20051129, end: 20051201
  3. ENBREL [Suspect]
     Dosage: UNKNOWN
     Route: 058
     Dates: start: 20060101
  4. INDOMETHACIN [Concomitant]
     Indication: JUVENILE ARTHRITIS
     Route: 065
     Dates: start: 19980101
  5. INDOMETHACIN [Concomitant]
     Route: 065
  6. CETIRIZINE HCL [Concomitant]
     Route: 065
  7. ECHINAFORCE [Concomitant]
     Route: 065
  8. PREDNISONE TAB [Concomitant]
     Dosage: UNKNOWN
     Route: 065
  9. PREDNISONE TAB [Concomitant]
     Route: 065
  10. LOSEC [Concomitant]
     Route: 065
  11. FISH OIL, HYDROGENATED [Concomitant]
     Route: 065
  12. NEORAL [Concomitant]
     Indication: JUVENILE ARTHRITIS
     Route: 065
  13. NEORAL [Concomitant]
     Route: 065
  14. NEORAL [Concomitant]
     Route: 065
  15. PARACETAMOL [Concomitant]
     Route: 065

REACTIONS (6)
  - EPILEPSY [None]
  - EYE INFLAMMATION [None]
  - FATIGUE [None]
  - LOSS OF CONSCIOUSNESS [None]
  - NAUSEA [None]
  - UPPER RESPIRATORY TRACT INFECTION [None]
